FAERS Safety Report 8895802 (Version 6)
Quarter: 2013Q3

REPORT INFORMATION
  Report Type: Spontaneous
  Country: US (occurrence: US)
  Receive Date: 20121108
  Receipt Date: 20130829
  Transmission Date: 20140515
  Serious: Yes (Hospitalization, Disabling, Other)
  Sender: FDA-Public Use
  Company Number: US-009507513-1211USA000370

PATIENT
  Sex: Female
  Weight: 47.62 kg

DRUGS (3)
  1. NUVARING [Suspect]
     Indication: CONTRACEPTION
     Dosage: UNK
     Route: 067
     Dates: start: 200909, end: 201011
  2. ADDERALL TABLETS [Concomitant]
     Indication: ATTENTION DEFICIT/HYPERACTIVITY DISORDER
     Dosage: 10 MG, TID
     Route: 048
     Dates: start: 2007
  3. WELLBUTRIN [Concomitant]
     Indication: DEPRESSION
     Dosage: 300 MG, UNK
     Route: 048
     Dates: start: 2009

REACTIONS (9)
  - Pulmonary embolism [Unknown]
  - Deep vein thrombosis [Unknown]
  - Breast lump removal [Unknown]
  - Chest pain [Unknown]
  - Dyspnoea [Unknown]
  - Pain in extremity [Unknown]
  - Cough [Unknown]
  - Breast mass [Unknown]
  - Post thrombotic syndrome [Unknown]
